FAERS Safety Report 25763914 (Version 1)
Quarter: 2025Q3

REPORT INFORMATION
  Report Type: Spontaneous
  Country: US (occurrence: US)
  Receive Date: 20250905
  Receipt Date: 20250905
  Transmission Date: 20251021
  Serious: No
  Sender: DOMPE FARMACEUTICI
  Company Number: US-FARMAPROD-202411-3906

PATIENT
  Sex: Female

DRUGS (17)
  1. OXERVATE [Suspect]
     Active Substance: CENEGERMIN-BKBJ
     Indication: Neurotrophic keratopathy
     Route: 047
     Dates: start: 20241003
  2. OXERVATE [Suspect]
     Active Substance: CENEGERMIN-BKBJ
     Route: 047
     Dates: start: 20241003
  3. SYSTANE (HYPROMELLOSE 2910 (4000 MPA.S)) [Concomitant]
     Active Substance: HYPROMELLOSE 2910 (4000 MPA.S)
  4. TEMAZEPAM [Concomitant]
     Active Substance: TEMAZEPAM
  5. PAROXETINE [Concomitant]
     Active Substance: PAROXETINE
  6. OMEPRAZOLE [Concomitant]
     Active Substance: OMEPRAZOLE
  7. HYDROXYZINE HYDROCHLORIDE [Concomitant]
     Active Substance: HYDROXYZINE HYDROCHLORIDE
  8. VENTOLIN HFA [Concomitant]
     Active Substance: ALBUTEROL SULFATE
  9. TRELEGY ELLIPTA [Concomitant]
     Active Substance: FLUTICASONE FUROATE\UMECLIDINIUM BROMIDE\VILANTEROL TRIFENATATE
  10. MIRTAZAPINE [Concomitant]
     Active Substance: MIRTAZAPINE
  11. CLONAZEPAM [Concomitant]
     Active Substance: CLONAZEPAM
  12. ATOMOXETINE HYDROCHLORIDE [Concomitant]
     Active Substance: ATOMOXETINE HYDROCHLORIDE
  13. LORATADINE [Concomitant]
     Active Substance: LORATADINE
  14. GABAPENTIN [Concomitant]
     Active Substance: GABAPENTIN
  15. CLONIDINE HYDROCHLORIDE [Concomitant]
     Active Substance: CLONIDINE HYDROCHLORIDE
  16. FLUTICASONE PROPIONATE [Concomitant]
     Active Substance: FLUTICASONE PROPIONATE
  17. ACYCLOVIR [Concomitant]
     Active Substance: ACYCLOVIR

REACTIONS (3)
  - Ocular discomfort [Unknown]
  - Eye pain [Unknown]
  - Off label use [Unknown]
